FAERS Safety Report 17489487 (Version 1)
Quarter: 2020Q1

REPORT INFORMATION
  Report Type: Spontaneous
  Country: US (occurrence: US)
  Receive Date: 20200303
  Receipt Date: 20200303
  Transmission Date: 20200409
  Serious: Yes (Death, Hospitalization, Other)
  Sender: FDA-Public Use
  Company Number: NVSC2020US059225

PATIENT
  Age: 4 Year
  Sex: Female

DRUGS (6)
  1. METHOTREXATE. [Suspect]
     Active Substance: METHOTREXATE
     Indication: ACUTE LYMPHOCYTIC LEUKAEMIA RECURRENT
     Dosage: UNK ON DAYS 1 AND 8
     Route: 037
  2. VINCRISTINE [Suspect]
     Active Substance: VINCRISTINE
     Indication: ACUTE LYMPHOCYTIC LEUKAEMIA RECURRENT
     Dosage: 1.5 MG/M2 (2 MG MAXIMUM) ON DAYS 1, 8, 15, AND 22
     Route: 065
  3. MITOXANTRONE [Suspect]
     Active Substance: MITOXANTRONE HYDROCHLORIDE
     Indication: ACUTE LYMPHOCYTIC LEUKAEMIA RECURRENT
     Dosage: 10 MG/M2 ON DAYS 1 AND 2
     Route: 065
  4. BORTEZOMIB. [Suspect]
     Active Substance: BORTEZOMIB
     Indication: ACUTE LYMPHOCYTIC LEUKAEMIA RECURRENT
     Dosage: 1.3 MG/M2 ON DAYS 1,4,8 AND 11
     Route: 065
  5. PEGASPARGASE [Suspect]
     Active Substance: PEGASPARGASE
     Indication: ACUTE LYMPHOCYTIC LEUKAEMIA RECURRENT
     Dosage: UNK 2500 UNITS/M2 ON DAYS 3 AND 17
     Route: 065
  6. DEXAMETHASONE. [Suspect]
     Active Substance: DEXAMETHASONE
     Indication: ACUTE LYMPHOCYTIC LEUKAEMIA RECURRENT
     Dosage: 20 MG/M2, BID DIVIDED ON DAYS 1-5 AND 15-19
     Route: 065

REACTIONS (8)
  - Neutropenia [Recovered/Resolved]
  - Product use in unapproved indication [Unknown]
  - Pneumonitis [Fatal]
  - Human herpesvirus 6 infection [Fatal]
  - Thrombocytopenia [Recovered/Resolved]
  - Cytomegalovirus infection [Fatal]
  - Acute lymphocytic leukaemia recurrent [Fatal]
  - Respiratory failure [Fatal]
